FAERS Safety Report 6569172-7 (Version None)
Quarter: 2010Q1

REPORT INFORMATION
  Report Type: 
  Country: None (occurrence: None)
  Receive Date: 20100201
  Receipt Date: 20100201
  Transmission Date: 20100710
  Serious: No
  Sender: FDA-Public Use
  Company Number: None

PATIENT
  Age: 70 Year
  Sex: Male
  Weight: 89.4 kg

DRUGS (1)
  1. DALTEPARIN SODIUM [Suspect]
     Indication: DEEP VEIN THROMBOSIS
     Dosage: 12500 UNITS EVERY DAY SQ
     Route: 058
     Dates: start: 20091103, end: 20091222

REACTIONS (1)
  - URTICARIA [None]
